FAERS Safety Report 11042899 (Version 1)
Quarter: 2015Q2

REPORT INFORMATION
  Report Type: Spontaneous
  Country: FR (occurrence: FR)
  Receive Date: 20150417
  Receipt Date: 20150417
  Transmission Date: 20150821
  Serious: Yes (Hospitalization, Other)
  Sender: FDA-Public Use
  Company Number: FR-009507513-1504FRA014664

PATIENT
  Age: 59 Year
  Sex: Female

DRUGS (4)
  1. IFOSFAMIDE. [Suspect]
     Active Substance: IFOSFAMIDE
     Indication: CHEMOTHERAPY
     Dosage: TOTAL DAILY DOSE: 2200 MG, FREQUENCY: QD, (1500 MG/M2 ON DAYL-DAY2-DAY3)
     Route: 042
     Dates: start: 20131114, end: 20131116
  2. IFOSFAMIDE. [Suspect]
     Active Substance: IFOSFAMIDE
     Dosage: TOTAL DAILY DOSE: 2200 MG, FREQUENCY: QD, (1500 MG/M2 ON DAYL-DAY2-DAY3)
     Route: 042
     Dates: start: 20131114, end: 20131116
  3. EMEND [Suspect]
     Active Substance: APREPITANT
     Indication: PROPHYLAXIS OF NAUSEA AND VOMITING
     Dosage: UNK
     Route: 048
     Dates: start: 20131114
  4. PACLITAXEL. [Concomitant]
     Active Substance: PACLITAXEL
     Indication: CHEMOTHERAPY
     Dosage: 280 MG, ONCE, (200 MG/M2 ON DAY 1)
     Route: 042
     Dates: start: 20131114, end: 20131114

REACTIONS (1)
  - Encephalopathy [Recovered/Resolved]

NARRATIVE: CASE EVENT DATE: 20131116
